FAERS Safety Report 5598625-3 (Version None)
Quarter: 2007Q4

REPORT INFORMATION
  Report Type: 
  Country: None (occurrence: None)
  Receive Date: 20071226
  Receipt Date: 20071007
  Transmission Date: 20080405
  Serious: No
  Sender: FDA-Public Use
  Company Number: 2007PV033548

PATIENT
  Age: 65 Year
  Sex: Male
  Weight: 141.5223 kg

DRUGS (4)
  1. SYMLIN [Suspect]
     Indication: TYPE 2 DIABETES MELLITUS
     Dosage: 36 MCG; TID; SC, 30 MCG; TID; SC
     Route: 058
     Dates: start: 20071004, end: 20071006
  2. SYMLIN [Suspect]
     Indication: TYPE 2 DIABETES MELLITUS
     Dosage: 36 MCG; TID; SC, 30 MCG; TID; SC
     Route: 058
     Dates: start: 20071006
  3. HUMALOG [Concomitant]
  4. GLUCOPHAGE [Concomitant]

REACTIONS (4)
  - CHEST DISCOMFORT [None]
  - DYSPNOEA [None]
  - FATIGUE [None]
  - WEIGHT INCREASED [None]
